FAERS Safety Report 13214472 (Version 1)
Quarter: 2017Q1

REPORT INFORMATION
  Report Type: Spontaneous
  Country: GB (occurrence: GB)
  Receive Date: 20170210
  Receipt Date: 20170210
  Transmission Date: 20170428
  Serious: Yes (Life-Threatening, Hospitalization)
  Sender: FDA-Public Use
  Company Number: GB-B.I. PHARMACEUTICALS,INC./RIDGEFIELD-2017-BI-007382

PATIENT
  Age: 58 Year
  Sex: Female
  Weight: 58 kg

DRUGS (1)
  1. JARDIANCE [Suspect]
     Active Substance: EMPAGLIFLOZIN
     Indication: TYPE 2 DIABETES MELLITUS
     Route: 048
     Dates: start: 20161216, end: 20170120

REACTIONS (6)
  - Tachycardia [Unknown]
  - Thirst [Unknown]
  - Diabetic ketoacidosis [Recovered/Resolved with Sequelae]
  - Respiratory rate increased [Unknown]
  - Consciousness fluctuating [Unknown]
  - Vomiting [Unknown]

NARRATIVE: CASE EVENT DATE: 20170119
